FAERS Safety Report 17241651 (Version 4)
Quarter: 2020Q1

REPORT INFORMATION
  Report Type: Spontaneous
  Country: US (occurrence: US)
  Receive Date: 20200107
  Receipt Date: 20200117
  Transmission Date: 20200409
  Serious: Yes (Life-Threatening, Hospitalization)
  Sender: FDA-Public Use
  Company Number: US-HORIZON-KRY-0013-2020

PATIENT
  Age: 67 Year
  Sex: Male

DRUGS (3)
  1. KRYSTEXXA [Suspect]
     Active Substance: PEGLOTICASE
     Indication: PRODUCT USED FOR UNKNOWN INDICATION
     Dosage: 8MG EVERY 2 WEEKS
     Route: 042
     Dates: start: 20191206, end: 20200103
  2. SOLU-MEDROL [Concomitant]
     Active Substance: METHYLPREDNISOLONE SODIUM SUCCINATE
     Indication: PREMEDICATION
     Dosage: 125 MG
  3. BENADRYL [Concomitant]
     Active Substance: DIPHENHYDRAMINE HYDROCHLORIDE
     Indication: PREMEDICATION
     Dosage: 25 MG

REACTIONS (11)
  - Pulse absent [Recovered/Resolved]
  - Respiratory arrest [Recovered/Resolved]
  - Anaphylactic reaction [Recovered/Resolved]
  - Unresponsive to stimuli [Recovered/Resolved]
  - Resuscitation [Recovered/Resolved]
  - Therapeutic response decreased [Unknown]
  - Respiratory rate decreased [Recovered/Resolved]
  - Bone contusion [Unknown]
  - Infusion related reaction [Recovered/Resolved]
  - Pain [Unknown]
  - Rib fracture [Unknown]

NARRATIVE: CASE EVENT DATE: 20200103
